FAERS Safety Report 6456181-1 (Version None)
Quarter: 2009Q4

REPORT INFORMATION
  Report Type: 
  Country: None (occurrence: None)
  Receive Date: 20091125
  Receipt Date: 20091104
  Transmission Date: 20100525
  Serious: Yes (Hospitalization)
  Sender: FDA-Public Use
  Company Number: US-SANOFI-AVENTIS-2009SA003842

PATIENT
  Sex: Female

DRUGS (5)
  1. LANTUS [Suspect]
     Dosage: 40-43 UNITS AT NIGHT DOSE:40 UNIT(S)
     Route: 058
  2. LANTUS [Suspect]
     Dosage: 40-43 UNITS AT NIGHT DOSE:43 UNIT(S)
     Route: 058
  3. OPTICLICK [Suspect]
  4. APIDRA [Suspect]
     Dosage: 10 UNITS EACH TIME AVERAGE THREE TIMES DAILY DOSE:10 UNIT(S)
     Route: 058
  5. OPTICLICK [Suspect]

REACTIONS (3)
  - BLOOD GLUCOSE INCREASED [None]
  - CYSTITIS [None]
  - SEPSIS [None]
